FAERS Safety Report 8050445-6 (Version None)
Quarter: 2011Q4

REPORT INFORMATION
  Report Type: 
  Country: None (occurrence: None)
  Receive Date: 20111212
  Receipt Date: 20111001
  Transmission Date: 20120403
  Serious: Yes (Other)
  Sender: FDA-Public Use
  Company Number: PHEH2011US02228

PATIENT
  Age: 46 Year
  Sex: Female
  Weight: 102 kg

DRUGS (2)
  1. GLATIRAMER ACETATE (GLATIRAMER ACETATE) [Concomitant]
  2. EXTAVIA [Suspect]
     Indication: MULTIPLE SCLEROSIS
     Dosage: SUBCUTANEOUS
     Route: 058
     Dates: start: 20100621, end: 20100720

REACTIONS (2)
  - SUICIDAL IDEATION [None]
  - DEPRESSED MOOD [None]
